FAERS Safety Report 24035420 (Version 2)
Quarter: 2024Q3

REPORT INFORMATION
  Report Type: Report from Study
  Country: US (occurrence: US)
  Receive Date: 20240701
  Receipt Date: 20240721
  Transmission Date: 20241017
  Serious: Yes (Death)
  Sender: Unknown Manufacturer
  Company Number: US-OTTER-US-2024AST000252

PATIENT
  Age: 59 Year
  Sex: Male

DRUGS (4)
  1. OTREXUP [Suspect]
     Active Substance: METHOTREXATE
     Indication: Psoriatic arthropathy
     Dosage: 15 MILLIGRAM, WEEKLY
     Route: 058
     Dates: start: 20231211, end: 20240426
  2. TALTZ [Concomitant]
     Active Substance: IXEKIZUMAB
     Indication: Product used for unknown indication
     Dosage: UNK
     Route: 065
  3. TALTZ [Concomitant]
     Active Substance: IXEKIZUMAB
     Dosage: UNK
     Route: 065
  4. TALTZ [Concomitant]
     Active Substance: IXEKIZUMAB
     Dosage: UNK
     Route: 065

REACTIONS (1)
  - Myocardial infarction [Fatal]

NARRATIVE: CASE EVENT DATE: 20240501
